FAERS Safety Report 6709618-4 (Version None)
Quarter: 2010Q2

REPORT INFORMATION
  Report Type: 
  Country: None (occurrence: None)
  Receive Date: 20100504
  Receipt Date: 20100426
  Transmission Date: 20101027
  Serious: Yes (Other)
  Sender: FDA-Public Use
  Company Number: US-PFIZER INC-2010053410

PATIENT
  Sex: Female
  Weight: 73 kg

DRUGS (3)
  1. CELEBREX [Suspect]
     Indication: EXOSTOSIS
     Dosage: 100 MG, 2X/DAY
     Route: 048
     Dates: start: 19920101
  2. CELEBREX [Suspect]
     Indication: ROTATOR CUFF SYNDROME
     Dosage: 200 MG, 2X/DAY
     Route: 048
     Dates: end: 20091201
  3. ZANTAC [Concomitant]
     Indication: GASTROOESOPHAGEAL REFLUX DISEASE
     Dosage: UNK
     Dates: start: 19930101

REACTIONS (1)
  - GLOMERULONEPHRITIS MEMBRANOUS [None]
